FAERS Safety Report 5036692-6 (Version None)
Quarter: 2006Q2

REPORT INFORMATION
  Report Type: 
  Country: None (occurrence: None)
  Receive Date: 20060616
  Receipt Date: 20060316
  Transmission Date: 20061013
  Serious: No
  Sender: FDA-Public Use
  Company Number: 2006RL000090

PATIENT
  Age: 61 Year
  Sex: Female
  Weight: 120.2032 kg

DRUGS (2)
  1. OMACOR [Suspect]
     Indication: BLOOD TRIGLYCERIDES INCREASED
     Dosage: 2 GM;QD;PO
     Route: 048
     Dates: start: 20060201, end: 20060312
  2. METFORMIN [Suspect]
     Dates: end: 20060312

REACTIONS (2)
  - HYPERGLYCAEMIA [None]
  - MYALGIA [None]
